FAERS Safety Report 4518467-7 (Version None)
Quarter: 2004Q4

REPORT INFORMATION
  Report Type: 
  Country: None (occurrence: None)
  Receive Date: 20041202
  Receipt Date: 20041116
  Transmission Date: 20050328
  Serious: No
  Sender: FDA-Public Use
  Company Number: 9319

PATIENT
  Age: 57 Year
  Sex: Female

DRUGS (2)
  1. CARBOPLATIN [Suspect]
     Indication: OVARIAN CANCER
     Dosage: 580 MG PER_CYCLE  IV
     Route: 042
  2. TAXOL [Concomitant]

REACTIONS (3)
  - ERYTHEMA [None]
  - HYPERHIDROSIS [None]
  - INFUSION RELATED REACTION [None]
